FAERS Safety Report 12279845 (Version 2)
Quarter: 2016Q2

REPORT INFORMATION
  Report Type: Spontaneous
  Country: CH (occurrence: CH)
  Receive Date: 20160418
  Receipt Date: 20160506
  Transmission Date: 20160815
  Serious: Yes (Other)
  Sender: FDA-Public Use
  Company Number: CH-GILEAD-2016-0209054

PATIENT
  Age: 56 Year
  Sex: Male

DRUGS (2)
  1. SOVALDI [Suspect]
     Active Substance: SOFOSBUVIR
     Indication: CHRONIC HEPATITIS C
     Dosage: UNK
     Route: 065
     Dates: start: 20140808, end: 20141030
  2. COPEGUS [Suspect]
     Active Substance: RIBAVIRIN
     Indication: CHRONIC HEPATITIS C
     Dosage: UNK
     Route: 065
     Dates: start: 20140808, end: 20141030

REACTIONS (9)
  - Hepatic cirrhosis [Unknown]
  - Drug ineffective [Unknown]
  - Hepatic function abnormal [Unknown]
  - Cryoglobulinaemia [Unknown]
  - Hypoalbuminaemia [Unknown]
  - Oedema peripheral [Unknown]
  - Gastric varices [Unknown]
  - Hepatitis C [Unknown]
  - Portal hypertension [Unknown]
